FAERS Safety Report 18750491 (Version 1)
Quarter: 2021Q1

REPORT INFORMATION
  Report Type: Spontaneous
  Country: CN (occurrence: CN)
  Receive Date: 20210118
  Receipt Date: 20210118
  Transmission Date: 20210419
  Serious: Yes (Hospitalization)
  Sender: FDA-Public Use
  Company Number: CN-ABBVIE-21P-035-3732506-00

PATIENT
  Age: 34 Year
  Sex: Male
  Weight: 72 kg

DRUGS (1)
  1. LIPANTHYL [Suspect]
     Active Substance: FENOFIBRATE
     Indication: TYPE 2 DIABETES MELLITUS
     Dosage: DAILY DOSE: 200 MG
     Route: 048
     Dates: start: 20201225, end: 20201230

REACTIONS (3)
  - Enzyme abnormality [Recovered/Resolved]
  - Aspartate aminotransferase increased [Recovered/Resolved]
  - Blood creatine phosphokinase increased [Recovered/Resolved]

NARRATIVE: CASE EVENT DATE: 20201228
